FAERS Safety Report 4750269-9 (Version None)
Quarter: 2005Q3

REPORT INFORMATION
  Report Type: 
  Country: None (occurrence: None)
  Receive Date: 20050819
  Receipt Date: 20050808
  Transmission Date: 20060218
  Serious: Yes (Disabling, Other)
  Sender: FDA-Public Use
  Company Number: 2005085537

PATIENT
  Age: 79 Year
  Sex: Male

DRUGS (1)
  1. NEURONTIN [Suspect]
     Indication: ILL-DEFINED DISORDER

REACTIONS (19)
  - ANOREXIA [None]
  - ARTHRALGIA [None]
  - BALANCE DISORDER [None]
  - BLINDNESS UNILATERAL [None]
  - CEREBROVASCULAR ACCIDENT [None]
  - CYST [None]
  - DIFFICULTY IN WALKING [None]
  - DIZZINESS [None]
  - DRUG DISPENSING ERROR [None]
  - EMOTIONAL DISTRESS [None]
  - FEAR [None]
  - HEADACHE [None]
  - LOSS OF CONSCIOUSNESS [None]
  - MUSCULOSKELETAL DISORDER [None]
  - PAIN IN JAW [None]
  - PERIARTHRITIS [None]
  - TINNITUS [None]
  - TOOTHACHE [None]
  - WRONG DRUG ADMINISTERED [None]
